FAERS Safety Report 13435913 (Version 1)
Quarter: 2017Q2

REPORT INFORMATION
  Report Type: Spontaneous
  Country: US (occurrence: US)
  Receive Date: 20170413
  Receipt Date: 20170413
  Transmission Date: 20170830
  Serious: Yes (Hospitalization)
  Sender: FDA-Public Use
  Company Number: US-PFIZER INC-2017149577

PATIENT
  Age: 71 Year
  Sex: Female
  Weight: 82 kg

DRUGS (23)
  1. REVATIO [Suspect]
     Active Substance: SILDENAFIL CITRATE
     Indication: SARCOIDOSIS
     Dosage: 20 MG, 3X/DAY
  2. PROCRIT [Concomitant]
     Active Substance: ERYTHROPOIETIN
     Dosage: UNK, ONCE TRIWEEKLY
  3. CLONAZEPAM. [Concomitant]
     Active Substance: CLONAZEPAM
     Indication: MUSCLE TWITCHING
     Dosage: 0.5 MG, 2X/DAY (MORNING AND EVENING)
     Dates: start: 201612
  4. ICAPS [Concomitant]
     Active Substance: MINERALS\VITAMINS
     Indication: VITAMIN SUPPLEMENTATION
     Dosage: 1 DF (1 CAPSULE), 2X/DAY
     Dates: start: 2011
  5. LACTULOSE. [Concomitant]
     Active Substance: LACTULOSE
     Indication: CONSTIPATION
     Dosage: 40 MG, AS NEEDED
  6. LUTEIN [Concomitant]
     Active Substance: LUTEIN
     Indication: EYE DISORDER
     Dosage: 20 MG, 1X/DAY
     Dates: start: 2011
  7. PROCRIT [Concomitant]
     Active Substance: ERYTHROPOIETIN
     Dosage: UNK, 3X/WEEK
     Dates: start: 2011
  8. ILEVRO [Concomitant]
     Active Substance: NEPAFENAC
     Indication: EYE DISORDER
     Dosage: 1 GTT, 1X/DAY (AT BEDTIME)
     Route: 047
     Dates: start: 2014
  9. RENA-VITE [Concomitant]
     Active Substance: ASCORBIC ACID\BIOTIN\CALCIUM PANTOTHENATE\CYANOCOBALAMIN\FOLIC ACID\NIACINAMIDE\PYRIDOXINE HYDROCHLORIDE\RIBOFLAVIN\THIAMINE MONONITRATE
     Indication: VITAMIN SUPPLEMENTATION
     Dosage: 1 DF (1 TABLET), DAILY
     Dates: start: 2014
  10. FOLIC ACID. [Concomitant]
     Active Substance: FOLIC ACID
     Indication: ANAEMIA
     Dosage: 1 MG, 1X/DAY
     Dates: start: 2011
  11. GLUCOSAMINE CHONDROITIN [Concomitant]
     Active Substance: CHONDROITIN SULFATE (BOVINE)\GLUCOSAMINE HYDROCHLORIDE
     Indication: ARTHRALGIA
     Dosage: UNK, 1X/DAY
     Dates: start: 2011
  12. LIPITOR [Concomitant]
     Active Substance: ATORVASTATIN CALCIUM
     Indication: BLOOD CHOLESTEROL ABNORMAL
     Dosage: 40 MG, DAILY
  13. PROCRIT [Concomitant]
     Active Substance: ERYTHROPOIETIN
     Dosage: UNK, 2X/WEEK
     Dates: start: 201002
  14. RENVELA [Concomitant]
     Active Substance: SEVELAMER CARBONATE
     Indication: PHOSPHORUS METABOLISM DISORDER
     Dosage: 800 MG, UNK (WITH MEALS AND SNACKS)
     Dates: start: 201401
  15. BIOTIN [Concomitant]
     Active Substance: BIOTIN
     Indication: NAIL DISORDER
     Dosage: 5000 UG, 1X/DAY
     Dates: start: 2011
  16. ATORVASTATIN [Concomitant]
     Active Substance: ATORVASTATIN
     Indication: BLOOD CHOLESTEROL ABNORMAL
     Dosage: 40 MG, DAILY
  17. BIOTIN [Concomitant]
     Active Substance: BIOTIN
     Indication: HAIR DISORDER
  18. PROCRIT [Concomitant]
     Active Substance: ERYTHROPOIETIN
     Dosage: UNK, 3X/WEEK INCLUDED DIALYSIS
     Dates: start: 2014
  19. BRIMONIDINE [Concomitant]
     Active Substance: BRIMONIDINE TARTRATE
     Indication: EYE DISORDER
     Dosage: 1 GTT, 2X/DAY (MORNING AND NIGHT)
     Route: 047
     Dates: start: 2015
  20. PROCRIT [Concomitant]
     Active Substance: ERYTHROPOIETIN
     Indication: ANAEMIA
     Dosage: UNK
     Dates: end: 200912
  21. ASPIRIN. [Concomitant]
     Active Substance: ASPIRIN
     Indication: ANTICOAGULANT THERAPY
     Dosage: 81 MG, 1X/DAY
     Dates: start: 2010
  22. LANTUS [Concomitant]
     Active Substance: INSULIN GLARGINE
     Indication: DIABETES MELLITUS
     Dosage: 8-10 UNITS, DAILY
     Dates: start: 2008
  23. RENVELA [Concomitant]
     Active Substance: SEVELAMER CARBONATE
     Dosage: REDUCED (TO TAKE WITH LUNCH)
     Dates: start: 2015

REACTIONS (6)
  - Vertigo [Recovered/Resolved]
  - Headache [Recovered/Resolved]
  - Dizziness [Unknown]
  - Impaired driving ability [Unknown]
  - Product use in unapproved indication [Unknown]
  - Chills [Recovering/Resolving]

NARRATIVE: CASE EVENT DATE: 201701
